FAERS Safety Report 4610872-3 (Version None)
Quarter: 2005Q2

REPORT INFORMATION
  Report Type: 
  Country: None (occurrence: None)
  Receive Date: 20050228
  Receipt Date: 20050104
  Transmission Date: 20051028
  Serious: Yes (Hospitalization)
  Sender: FDA-Public Use
  Company Number: USA041080067

PATIENT
  Age: 32 Year
  Sex: Male

DRUGS (3)
  1. OLANZAPINE [Suspect]
     Indication: BIPOLAR I DISORDER
  2. LIPITOR (ATORAVASTATIN CALCIUM) [Concomitant]
  3. LEXAPRO [Concomitant]

REACTIONS (1)
  - SUICIDAL IDEATION [None]
